FAERS Safety Report 6284918-3 (Version None)
Quarter: 2009Q3

REPORT INFORMATION
  Report Type: 
  Country: None (occurrence: None)
  Receive Date: 20090723
  Receipt Date: 20090714
  Transmission Date: 20100115
  Serious: Yes (Other)
  Sender: FDA-Public Use
  Company Number: 327684

PATIENT
  Age: 45 Year
  Sex: Female

DRUGS (8)
  1. METHOTREXATE [Suspect]
     Indication: ARTHROPATHY
     Dosage: 10 MG, 1 WEEK, ORAL; 20 MG (1 WEEK) , ORAL; 25 MG (1 WEEK), SUBCUTANEOUS
     Route: 048
     Dates: start: 20060516
  2. METHOTREXATE [Suspect]
     Indication: ARTHROPATHY
     Dosage: 10 MG, 1 WEEK, ORAL; 20 MG (1 WEEK) , ORAL; 25 MG (1 WEEK), SUBCUTANEOUS
     Route: 048
     Dates: start: 20060816
  3. (BOSENTAN) [Suspect]
     Indication: PULMONARY ARTERIAL HYPERTENSION
     Dosage: 125 MG, 2 DAY
     Dates: start: 20050504
  4. PREDNISOLONE [Concomitant]
  5. FOLIC ACID [Concomitant]
  6. OMEPRAZOLE [Concomitant]
  7. MULTI-VITAMINS [Concomitant]
  8. (FISH OIL) [Concomitant]

REACTIONS (7)
  - CHOLELITHIASIS [None]
  - DRUG INTERACTION [None]
  - DYSPNOEA [None]
  - GAIT DISTURBANCE [None]
  - HEPATOTOXICITY [None]
  - LETHARGY [None]
  - MYOSITIS [None]
